FAERS Safety Report 11908834 (Version 1)
Quarter: 2016Q1

REPORT INFORMATION
  Report Type: Spontaneous
  Country: US (occurrence: US)
  Receive Date: 20160111
  Receipt Date: 20160111
  Transmission Date: 20160526
  Serious: No
  Sender: FDA-Public Use
  Company Number: US-GALDERMA-US15001145

PATIENT
  Age: 30 Year
  Sex: Male

DRUGS (5)
  1. CETAPHIL MOISTURIZING CREAM [Suspect]
     Active Substance: COSMETICS
     Indication: DRY SKIN PROPHYLAXIS
     Route: 061
     Dates: start: 201410, end: 20150302
  2. IRISH SPRING [Concomitant]
     Indication: THERAPEUTIC SKIN CARE TOPICAL
     Route: 061
  3. DESONIDE (DESONIDE) 0.05% [Suspect]
     Active Substance: DESONIDE
     Indication: ECZEMA
     Route: 061
     Dates: start: 201410
  4. CETAPHIL MOISTURIZING CREAM [Suspect]
     Active Substance: COSMETICS
     Route: 061
  5. CVS GENTLE SKIN CLEANSER [Concomitant]
     Indication: THERAPEUTIC SKIN CARE TOPICAL
     Route: 061

REACTIONS (4)
  - Dermatitis [Not Recovered/Not Resolved]
  - Drug ineffective [Not Recovered/Not Resolved]
  - Hypersensitivity [Not Recovered/Not Resolved]
  - Rash [Not Recovered/Not Resolved]

NARRATIVE: CASE EVENT DATE: 2014
